FAERS Safety Report 14381827 (Version 1)
Quarter: 2018Q1

REPORT INFORMATION
  Report Type: Spontaneous
  Country: JP (occurrence: JP)
  Receive Date: 20180112
  Receipt Date: 20180112
  Transmission Date: 20180509
  Serious: Yes (Other)
  Sender: FDA-Public Use
  Company Number: JP-PFIZER INC-2018012652

PATIENT
  Age: 47 Year
  Sex: Male
  Weight: 59 kg

DRUGS (8)
  1. CYCLOPHOSPHAMIDE. [Suspect]
     Active Substance: CYCLOPHOSPHAMIDE
  2. CISPLATIN. [Concomitant]
     Active Substance: CISPLATIN
  3. CYTARABINE. [Concomitant]
     Active Substance: CYTARABINE
  4. TACROLIMUS. [Suspect]
     Active Substance: TACROLIMUS
     Indication: GRAFT VERSUS HOST DISEASE IN SKIN
     Dosage: 2.1 MG, UNK
     Route: 041
  5. ETOPOSIDE. [Concomitant]
     Active Substance: ETOPOSIDE
  6. METHYLPREDNISOLONE. [Suspect]
     Active Substance: METHYLPREDNISOLONE
  7. DEXAMETHASONE. [Suspect]
     Active Substance: DEXAMETHASONE
  8. METHYLPREDNISOLONE SODIUM SUCCINATE. [Suspect]
     Active Substance: METHYLPREDNISOLONE SODIUM SUCCINATE
     Indication: GRAFT VERSUS HOST DISEASE IN SKIN
     Dosage: 40 MG, UNK
     Route: 041

REACTIONS (1)
  - Pneumatosis intestinalis [Recovering/Resolving]
